FAERS Safety Report 8871920 (Version 1)
Quarter: 2012Q4

REPORT INFORMATION
  Report Type: 
  Country: US (occurrence: US)
  Receive Date: 20121029
  Receipt Date: 20121029
  Transmission Date: 20130627
  Serious: Yes (Hospitalization)
  Sender: FDA-Public Use
  Company Number: PHEH2012US021101

PATIENT
  Sex: Male

DRUGS (5)
  1. CLOZARIL [Suspect]
  2. LATUDA [Suspect]
     Dosage: 160 mg
     Route: 048
  3. KEPPRA [Suspect]
     Dosage: 750 mg, BID
  4. BENZODIAZEPINE DERIVATIVES [Suspect]
  5. ANTICONVULSANT [Suspect]

REACTIONS (1)
  - Psychiatric decompensation [Unknown]
